FAERS Safety Report 24138308 (Version 2)
Quarter: 2024Q3

REPORT INFORMATION
  Report Type: Spontaneous
  Country: CA (occurrence: CA)
  Receive Date: 20240725
  Receipt Date: 20240903
  Transmission Date: 20241016
  Serious: Yes (Death)
  Sender: PURDUE
  Company Number: CA-PURDUE-USA-2024-0310942

PATIENT
  Age: 54 Year
  Sex: Female

DRUGS (3)
  1. BUPRENORPHINE [Suspect]
     Active Substance: BUPRENORPHINE
     Indication: Product used for unknown indication
     Dosage: 1 EVERY 1 MONTHS
     Route: 065
  2. SUBLOCADE [Suspect]
     Active Substance: BUPRENORPHINE
     Indication: Product used for unknown indication
     Dosage: 300 MILLIGRAM, 1 EVERY 1 MONTHS
     Route: 065
  3. CLONAZEPAM [Concomitant]
     Active Substance: CLONAZEPAM
     Indication: Product used for unknown indication
     Dosage: 1 MILLIGRAM, 2 EVERY 1 DAYS
     Route: 065

REACTIONS (3)
  - Death [Fatal]
  - Cardiac discomfort [Fatal]
  - Drug abuse [Fatal]
